FAERS Safety Report 9516287 (Version 1)
Quarter: 2013Q3

REPORT INFORMATION
  Report Type: Spontaneous
  Country: GB (occurrence: None)
  Receive Date: 20130909
  Receipt Date: 20130909
  Transmission Date: 20140515
  Serious: Yes (Hospitalization)
  Sender: FDA-Public Use
  Company Number: B0920699A

PATIENT
  Age: 7 Year
  Sex: Male

DRUGS (2)
  1. SALBUTAMOL SULPHATE (FORMULATION UNKNOWN) (GENERIC) (ALBUTEROL SULFATE) [Suspect]
     Indication: ASTHMA
  2. BECLOMETHASONE DIPROPION. [Concomitant]

REACTIONS (8)
  - Lactic acidosis [None]
  - Rhinitis [None]
  - Respiratory rate increased [None]
  - Nasal flaring [None]
  - Use of accessory respiratory muscles [None]
  - Oxygen saturation decreased [None]
  - Respiratory distress [None]
  - Metabolic acidosis [None]
